FAERS Safety Report 8910003 (Version 2)
Quarter: 2013Q1

REPORT INFORMATION
  Report Type: Spontaneous
  Country: US (occurrence: US)
  Receive Date: 20121114
  Receipt Date: 20130103
  Transmission Date: 20140127
  Serious: No
  Sender: FDA-Public Use
  Company Number: US-009507513-1211USA005427

PATIENT
  Age: 66 Year
  Sex: Female
  Weight: 136.96 kg

DRUGS (1)
  1. ZOCOR [Suspect]
     Dosage: UNK
     Route: 048
     Dates: start: 200611

REACTIONS (1)
  - Muscle spasms [Unknown]
